FAERS Safety Report 25094670 (Version 4)
Quarter: 2025Q2

REPORT INFORMATION
  Report Type: Spontaneous
  Country: DE (occurrence: DE)
  Receive Date: 20250319
  Receipt Date: 20250602
  Transmission Date: 20250716
  Serious: Yes (Other)
  Sender: TEVA
  Company Number: DE-BIOGEN-2020BI00891482

PATIENT
  Age: 58 Year
  Sex: Male

DRUGS (15)
  1. RAMIPRIL [Suspect]
     Active Substance: RAMIPRIL
     Indication: Blood pressure increased
     Route: 065
     Dates: start: 202003, end: 202003
  2. METOPROLOL [Suspect]
     Active Substance: METOPROLOL
     Indication: Hypertension
     Route: 065
     Dates: start: 2020, end: 202007
  3. AMITRIPTYLINE [Concomitant]
     Active Substance: AMITRIPTYLINE
     Indication: Sleep disorder
     Route: 065
  4. AMITRIPTYLINE [Concomitant]
     Active Substance: AMITRIPTYLINE
     Indication: Sleep disorder
     Route: 065
  5. CLINDAMYCIN HYDROCHLORIDE [Suspect]
     Active Substance: CLINDAMYCIN HYDROCHLORIDE
     Indication: Osteitis
     Route: 065
     Dates: start: 20250325, end: 20250403
  6. MORPHINE SULFATE [Concomitant]
     Active Substance: MORPHINE SULFATE
     Indication: Pain
     Route: 065
  7. MORPHINE SULFATE [Concomitant]
     Active Substance: MORPHINE SULFATE
     Indication: Pain
     Route: 065
  8. SPINRAZA [Suspect]
     Active Substance: NUSINERSEN
     Indication: Spinal muscular atrophy
     Dosage: 12 MILLIGRAM, Q 4 MONTHS
     Route: 037
     Dates: start: 20190524
  9. SPINRAZA [Suspect]
     Active Substance: NUSINERSEN
     Indication: Spinal muscular atrophy
     Dosage: 12 MILLIGRAM, Q 4 MONTHS
     Route: 037
     Dates: start: 20190527
  10. SPINRAZA [Suspect]
     Active Substance: NUSINERSEN
     Indication: Spinal muscular atrophy
     Dosage: 12 MILLIGRAM, Q 4 MONTHS
     Route: 037
     Dates: start: 20190527
  11. SPINRAZA [Suspect]
     Active Substance: NUSINERSEN
     Indication: Spinal muscular atrophy
     Dosage: 12 MILLIGRAM, Q 4 MONTHS
     Route: 037
     Dates: start: 20190524
  12. OMEPRAZOLE [Concomitant]
     Active Substance: OMEPRAZOLE
     Indication: Gastritis
     Route: 065
  13. OMEPRAZOLE [Concomitant]
     Active Substance: OMEPRAZOLE
     Indication: Gastritis
     Route: 065
  14. COMIRNATY [Concomitant]
     Indication: COVID-19 prophylaxis
     Route: 065
  15. COMIRNATY [Concomitant]
     Indication: COVID-19 prophylaxis
     Route: 065

REACTIONS (22)
  - Hypertension [Recovered/Resolved]
  - Asthenia [Recovered/Resolved]
  - Epistaxis [Recovered/Resolved]
  - Head discomfort [Unknown]
  - Dizziness [Recovered/Resolved]
  - Motor dysfunction [Recovered/Resolved]
  - Post lumbar puncture syndrome [Recovered/Resolved]
  - Drug ineffective [Recovered/Resolved]
  - Muscular weakness [Not Recovered/Not Resolved]
  - Fatigue [Recovered/Resolved]
  - Accidental underdose [Recovered/Resolved]
  - Migraine with aura [Recovered/Resolved]
  - Musculoskeletal disorder [Recovered/Resolved]
  - Eye haemorrhage [Recovered/Resolved]
  - Exertional headache [Not Recovered/Not Resolved]
  - Nasal septum disorder [Unknown]
  - Fall [Recovered/Resolved]
  - Sinusitis [Recovered/Resolved]
  - Speech disorder [Recovered/Resolved]
  - Drug intolerance [Unknown]
  - Arrhythmia [Unknown]
  - Motor dysfunction [Recovered/Resolved]

NARRATIVE: CASE EVENT DATE: 20190924
